FAERS Safety Report 13549901 (Version 1)
Quarter: 2017Q2

REPORT INFORMATION
  Report Type: Spontaneous
  Country: US (occurrence: US)
  Receive Date: 20170516
  Receipt Date: 20170516
  Transmission Date: 20170830
  Serious: Yes (Other)
  Sender: FDA-Public Use
  Company Number: US-PRESTIGE BRANDS -2020805

PATIENT
  Sex: Male

DRUGS (1)
  1. CLEAR EYES MAXIMUM ITCHY EYE RELIEF [Suspect]
     Active Substance: GLYCERIN\NAPHAZOLINE HYDROCHLORIDE\ZINC SULFATE
     Indication: EYE PRURITUS
     Route: 047

REACTIONS (6)
  - Visual impairment [Not Recovered/Not Resolved]
  - Incorrect drug administration duration [None]
  - Drug ineffective [None]
  - Eye pruritus [Not Recovered/Not Resolved]
  - Vision blurred [Not Recovered/Not Resolved]
  - Eye irritation [Not Recovered/Not Resolved]
